FAERS Safety Report 6916270-1 (Version None)
Quarter: 2010Q3

REPORT INFORMATION
  Report Type: 
  Country: None (occurrence: None)
  Receive Date: 20100810
  Receipt Date: 20100730
  Transmission Date: 20110219
  Serious: Yes (Death, Hospitalization, Other)
  Sender: FDA-Public Use
  Company Number: US-PFIZER INC-2010096130

PATIENT
  Sex: Female

DRUGS (1)
  1. GEODON [Suspect]
     Dosage: UNK
     Dates: start: 20010101

REACTIONS (4)
  - DEHYDRATION [None]
  - DIABETES MELLITUS [None]
  - DYSARTHRIA [None]
  - HYPERGLYCAEMIA [None]
